FAERS Safety Report 21820210 (Version 1)
Quarter: 2023Q1

REPORT INFORMATION
  Report Type: Spontaneous
  Country: GB (occurrence: GB)
  Receive Date: 20230105
  Receipt Date: 20230105
  Transmission Date: 20230418
  Serious: Yes (Life-Threatening, Disabling)
  Sender: FDA-Public Use
  Company Number: GB-MHRA-MED-202212220159488810-VSGFP

PATIENT
  Age: 17 Year
  Sex: Female
  Weight: 50 kg

DRUGS (1)
  1. SERTRALINE [Suspect]
     Active Substance: SERTRALINE HYDROCHLORIDE
     Indication: Eating disorder
     Dosage: 200 MILLIGRAM, DAILY
     Route: 065
     Dates: start: 20220304, end: 20220925

REACTIONS (1)
  - Hypomania [Recovered/Resolved with Sequelae]

NARRATIVE: CASE EVENT DATE: 20220304
